FAERS Safety Report 5746729-4 (Version None)
Quarter: 2008Q2

REPORT INFORMATION
  Report Type: 
  Country: None (occurrence: None)
  Receive Date: 20080522
  Receipt Date: 20080514
  Transmission Date: 20081010
  Serious: Yes (Hospitalization)
  Sender: FDA-Public Use
  Company Number: US-ELI_LILLY_AND_COMPANY-US200805003106

PATIENT
  Sex: Female
  Weight: 106.58 kg

DRUGS (11)
  1. BYETTA [Suspect]
     Indication: TYPE 2 DIABETES MELLITUS
     Dosage: 5 UG, 2/D
     Route: 058
     Dates: start: 20050501, end: 20070101
  2. BYETTA [Suspect]
     Dosage: 10 UG, 2/D
     Route: 058
     Dates: start: 20070101
  3. GLIMEPIRIDE [Concomitant]
     Indication: TYPE 2 DIABETES MELLITUS
     Dosage: 6 MG, UNK
     Route: 048
     Dates: start: 20080401
  4. LEVAQUIN [Concomitant]
     Dosage: 250 MG, UNK
     Route: 042
     Dates: start: 20080501
  5. ASPIRIN [Concomitant]
     Indication: PROPHYLAXIS
     Dosage: 81 MG, DAILY (1/D)
     Route: 048
  6. LYRICA [Concomitant]
     Indication: DIABETIC NEUROPATHY
     Dosage: 150 MG, UNK
     Route: 048
     Dates: start: 20030101
  7. OXYCONTIN [Concomitant]
     Dosage: 10 MG, UNK
  8. MULTI-VITAMIN [Concomitant]
  9. LEXAPRO [Concomitant]
     Indication: ANXIETY
     Dosage: 20 MG, DAILY (1/D)
     Route: 048
  10. ALTOPREV [Concomitant]
     Indication: BLOOD CHOLESTEROL INCREASED
     Dosage: 60 MG, DAILY (1/D)
     Route: 048
  11. REQUIP [Concomitant]
     Indication: RESTLESS LEGS SYNDROME
     Dosage: 1 MG, EACH EVENING
     Route: 048

REACTIONS (10)
  - ACCIDENTAL OVERDOSE [None]
  - BLOOD GLUCOSE INCREASED [None]
  - CARDIAC FAILURE CONGESTIVE [None]
  - DYSPNOEA [None]
  - FATIGUE [None]
  - FLUID RETENTION [None]
  - MEDICATION ERROR [None]
  - PHARMACEUTICAL PRODUCT COMPLAINT [None]
  - RENAL DISORDER [None]
  - WEIGHT INCREASED [None]
